FAERS Safety Report 13737297 (Version 1)
Quarter: 2017Q3

REPORT INFORMATION
  Report Type: Spontaneous
  Country: IT (occurrence: IT)
  Receive Date: 20170710
  Receipt Date: 20170710
  Transmission Date: 20171127
  Serious: Yes (Other)
  Sender: FDA-Public Use
  Company Number: IT-PFIZER INC-2017267857

PATIENT
  Age: 72 Year
  Sex: Male

DRUGS (1)
  1. ECALTA [Suspect]
     Active Substance: ANIDULAFUNGIN
     Indication: CANDIDA PNEUMONIA
     Dosage: 100 MG, DAILY
     Route: 042

REACTIONS (1)
  - Bronchostenosis [Not Recovered/Not Resolved]

NARRATIVE: CASE EVENT DATE: 20170524
